FAERS Safety Report 8518609-2 (Version None)
Quarter: 2012Q3

REPORT INFORMATION
  Report Type: 
  Country: None (occurrence: None)
  Receive Date: 20120718
  Receipt Date: 20120525
  Transmission Date: 20120928
  Serious: Yes (Hospitalization, Other)
  Sender: FDA-Public Use
  Company Number: US-BRISTOL-MYERS SQUIBB COMPANY-15723935

PATIENT
  Age: 71 Year
  Sex: Male
  Weight: 100 kg

DRUGS (45)
  1. NIASPAN [Concomitant]
     Dosage: 1000 MG
  2. OMEPRAZOLE [Concomitant]
     Dosage: 20 MG CAP
  3. ROPINIROLE [Concomitant]
     Dosage: 1 MG
  4. PROMETHAZINE [Concomitant]
     Dosage: TABLETS
  5. PREDNISONE [Concomitant]
     Dosage: TABLETS
  6. VYTORIN [Concomitant]
     Dosage: 1 DF = 10/20 TABLETS
  7. ZETIA [Concomitant]
     Dosage: TABS
     Route: 048
  8. PRILOSEC [Concomitant]
     Route: 048
  9. SOTALOL HCL [Concomitant]
     Route: 048
  10. FLUTICASONE PROPIONATE [Concomitant]
  11. SALMETEROL [Concomitant]
  12. IRON [Concomitant]
  13. LIPITOR [Concomitant]
     Dosage: TABLETS
  14. ZITHROMAX [Concomitant]
     Dosage: TABS
  15. MULTI-VITAMINS [Concomitant]
  16. PRAVASTATIN MR [Concomitant]
     Dosage: TABS, 80MG
  17. ASPIRIN [Concomitant]
     Route: 048
  18. WARFARIN SODIUM [Concomitant]
     Dosage: TAB
  19. CEFUROXIME [Concomitant]
     Dosage: TABLET
     Route: 048
  20. AZITHROMYCIN [Concomitant]
     Dosage: TABLET, 1 TAB FOR FOUR DAYS
     Route: 048
  21. SOTALOL HCL [Concomitant]
     Dosage: TABLETS
  22. AMIODARONE HCL [Concomitant]
     Dosage: TABLETS
  23. GLIPIZIDE [Concomitant]
     Route: 048
  24. EZETIMIBE [Concomitant]
     Route: 048
  25. AVODART [Concomitant]
     Dosage: CAPSULE
     Route: 048
  26. BENZONATATE [Concomitant]
     Dosage: CAPSULES
     Route: 048
  27. CYCLOBENZAPRINE HCL [Concomitant]
     Dosage: TABLETS
  28. OXYCODONE HCL [Concomitant]
     Dosage: 5MG-500MG
  29. TYLENOL [Concomitant]
  30. NITROGLYCERIN [Concomitant]
  31. LOPERAMIDE [Concomitant]
  32. VITAMIN B-12 [Concomitant]
  33. LEVAQUIN [Concomitant]
  34. COUMADIN [Suspect]
     Indication: ARRHYTHMIA SUPRAVENTRICULAR
     Dosage: 5 MG-6 DAYS A WEEK AND 1 1/2=7.5 MG ONE DAY A WEEK
     Route: 048
     Dates: end: 20110501
  35. NIACIN [Concomitant]
  36. DILTIAZEM [Concomitant]
     Dosage: DOSE:180(UNITS NOT SPECIFIED).,CAPS
  37. METFORMIN HYDROCHLORIDE [Concomitant]
     Dosage: TABS
  38. SAW PALMETTO [Concomitant]
  39. TOPROL-XL [Concomitant]
     Dosage: TABLETS
  40. NITROGLYCERIN [Concomitant]
     Dosage: TABS
     Route: 060
  41. REQUIP [Concomitant]
  42. LISINOPRIL [Concomitant]
     Route: 048
  43. ADVAIR DISKUS 100/50 [Concomitant]
     Dosage: 250-50 MCG
  44. LOVAZA [Concomitant]
     Dosage: OMEGA-3 POLYUNSATURATED FATTY ACIDS
     Route: 048
  45. PROAIR HFA [Concomitant]
     Indication: WHEEZING
     Dosage: 2 PUFFS EVERY 4 HOURS
     Route: 048

REACTIONS (3)
  - PROSTATIC HAEMORRHAGE [None]
  - HAEMORRHAGE [None]
  - INTERNATIONAL NORMALISED RATIO INCREASED [None]
